FAERS Safety Report 10759748 (Version 1)
Quarter: 2015Q1

REPORT INFORMATION
  Report Type: Spontaneous
  Country: ES (occurrence: ES)
  Receive Date: 20150203
  Receipt Date: 20150203
  Transmission Date: 20150721
  Serious: Yes (Other)
  Sender: FDA-Public Use
  Company Number: ES-GLAXOSMITHKLINE INC.-ES2015012362

PATIENT

DRUGS (2)
  1. BENLYSTA [Suspect]
     Active Substance: BELIMUMAB
     Indication: POLYARTHRITIS
     Dosage: 400 MG: DOSAGE: DAYS 0, 14 AND 28 AND AFTER EVERY 28 DAYS.
     Route: 042
     Dates: start: 20141020, end: 20141201
  2. BENLYSTA [Suspect]
     Active Substance: BELIMUMAB
     Dosage: 120 MG: APROX. 500-550 MG DEPENDING ON WEIGHT. DOSE: DAYS 0, 14 AND 28 AND AFTER EVERY 28 DAYS
     Route: 042
     Dates: start: 20141020, end: 20141201

REACTIONS (5)
  - Rash [Recovering/Resolving]
  - Insomnia [Not Recovered/Not Resolved]
  - Anxiety [Not Recovered/Not Resolved]
  - Stress [Not Recovered/Not Resolved]
  - Erythema [Recovering/Resolving]

NARRATIVE: CASE EVENT DATE: 20141020
